FAERS Safety Report 7503495-X (Version None)
Quarter: 2011Q2

REPORT INFORMATION
  Report Type: 
  Country: None (occurrence: None)
  Receive Date: 20110525
  Receipt Date: 20110518
  Transmission Date: 20111010
  Serious: Yes (Hospitalization)
  Sender: FDA-Public Use
  Company Number: JP-ROCHE-756662

PATIENT
  Age: 70 Year
  Sex: Male

DRUGS (7)
  1. SELBEX [Concomitant]
     Dates: start: 20090325, end: 20110117
  2. URSO 250 [Concomitant]
     Dates: start: 20090325, end: 20110117
  3. PEGASYS [Suspect]
     Indication: HEPATITIS C
     Route: 058
     Dates: start: 20090325, end: 20110114
  4. VITAMEDIN [Concomitant]
     Dates: start: 20090325, end: 20110117
  5. ACINON [Concomitant]
     Dates: start: 20090325, end: 20110117
  6. WARFARIN SODIUM [Suspect]
     Indication: THROMBOSIS PROPHYLAXIS
     Route: 048
     Dates: start: 20090325, end: 20110121
  7. LEVOFLOXACIN [Suspect]
     Indication: BRONCHITIS
     Route: 048
     Dates: start: 20110114, end: 20110117

REACTIONS (2)
  - PULMONARY ALVEOLAR HAEMORRHAGE [None]
  - BRONCHITIS [None]
